FAERS Safety Report 6892872-6 (Version None)
Quarter: 2010Q3

REPORT INFORMATION
  Report Type: 
  Country: None (occurrence: None)
  Receive Date: 20100731
  Receipt Date: 20081014
  Transmission Date: 20110219
  Serious: No
  Sender: FDA-Public Use
  Company Number: US-PFIZER INC-2008086392

PATIENT

DRUGS (6)
  1. NORVASC [Suspect]
  2. PROCARDIA [Suspect]
  3. HYDROCHLOROTHIAZIDE [Suspect]
  4. CAPOTEN [Suspect]
  5. BACTRIM [Suspect]
  6. HYDRALAZINE HCL [Suspect]

REACTIONS (1)
  - HYPERSENSITIVITY [None]
